FAERS Safety Report 15736847 (Version 1)
Quarter: 2018Q4

REPORT INFORMATION
  Report Type: Spontaneous
  Country: US (occurrence: US)
  Receive Date: 20181204
  Receipt Date: 20181204
  Transmission Date: 20190205
  Serious: Yes (Other)
  Sender: FDA-Public Use
  Company Number: None

PATIENT
  Age: 51 Year
  Sex: Female
  Weight: 68.44 kg

DRUGS (9)
  1. ASA [Concomitant]
     Active Substance: ASPIRIN
  2. OYSTER SHELL CALCIUM [Concomitant]
     Active Substance: CALCIUM
  3. METHADONE [Concomitant]
     Active Substance: METHADONE HYDROCHLORIDE
  4. CLONAZEPAM. [Concomitant]
     Active Substance: CLONAZEPAM
  5. LORATADINE. [Concomitant]
     Active Substance: LORATADINE
  6. VITAMIN C [Concomitant]
     Active Substance: ASCORBIC ACID
  7. CAPECITABINE. [Suspect]
     Active Substance: CAPECITABINE
     Indication: BREAST CANCER FEMALE
     Dosage: ?          OTHER FREQUENCY:BID X7D, 7D OFF;?
     Route: 048
     Dates: start: 20181108
  8. HYDROCODONE-APAP [Concomitant]
     Active Substance: ACETAMINOPHEN\HYDROCODONE
  9. NORTRIPTYLINE [Concomitant]
     Active Substance: NORTRIPTYLINE

REACTIONS (2)
  - Stomatitis [None]
  - Palmar-plantar erythrodysaesthesia syndrome [None]

NARRATIVE: CASE EVENT DATE: 20181203
